FAERS Safety Report 11109740 (Version 1)
Quarter: 2015Q2

REPORT INFORMATION
  Report Type: Other
  Country: DE (occurrence: DE)
  Receive Date: 20150513
  Receipt Date: 20150513
  Transmission Date: 20150821
  Serious: Yes (Other)
  Sender: FDA-Public Use
  Company Number: DE-MYLANLABS-2015M1015122

PATIENT

DRUGS (5)
  1. CANDESARTAN [Suspect]
     Active Substance: CANDESARTAN
     Indication: HYPERTENSION
     Dosage: 16 [MG/D ]
     Route: 048
     Dates: start: 20140303, end: 20140804
  2. HYDROCHLOROTHIAZIDE. [Suspect]
     Active Substance: HYDROCHLOROTHIAZIDE
     Indication: HYPERTENSION
     Dosage: 12.5 [MG/D ]
     Route: 048
     Dates: start: 20140303, end: 20140804
  3. FOLSAN [Concomitant]
     Active Substance: FOLIC ACID
     Indication: PROPHYLAXIS OF NEURAL TUBE DEFECT
     Dosage: 0.4 [MG/D ]
     Route: 048
     Dates: start: 20140303, end: 20141201
  4. METHYLDOPA. [Concomitant]
     Active Substance: METHYLDOPA
     Indication: HYPERTENSION
     Dosage: 1000 [MG/D ]/ 1000 MG IN THE LAST 2 WEEKS OF PREGNANCY: 250-250-500
     Route: 048
     Dates: start: 20140805, end: 20141201
  5. L-THYROXIN [Concomitant]
     Active Substance: LEVOTHYROXINE SODIUM
     Indication: HYPOTHYROIDISM
     Dosage: 75 [?G/D ]/ INITIALLY 50?G/D, INCREASED DOSAGE TO 75?G/D
     Route: 048
     Dates: start: 20140303, end: 20141201

REACTIONS (2)
  - Oligohydramnios [Recovered/Resolved]
  - Exposure during pregnancy [Unknown]
